FAERS Safety Report 5103351-0 (Version None)
Quarter: 2006Q3

REPORT INFORMATION
  Report Type: 
  Country: None (occurrence: None)
  Receive Date: 20060913
  Receipt Date: 20060829
  Transmission Date: 20061208
  Serious: Yes (Disabling, Other)
  Sender: FDA-Public Use
  Company Number: GBWYE799529AUG06

PATIENT
  Sex: Female

DRUGS (3)
  1. ENBREL [Suspect]
     Indication: RHEUMATOID ARTHRITIS
     Route: 058
     Dates: start: 20050214, end: 20060512
  2. ACETAMINOPHEN W/ CODEINE [Concomitant]
     Dosage: UNKNOWN
     Route: 065
  3. ARTHROTEC [Concomitant]
     Dosage: UNKNOWN
     Route: 065

REACTIONS (4)
  - EYE INFECTION [None]
  - EYE SWELLING [None]
  - FACE OEDEMA [None]
  - SWELLING FACE [None]
